FAERS Safety Report 16677626 (Version 3)
Quarter: 2019Q3

REPORT INFORMATION
  Report Type: Spontaneous
  Country: RO (occurrence: RO)
  Receive Date: 20190807
  Receipt Date: 20190925
  Transmission Date: 20191004
  Serious: Yes (Other)
  Sender: FDA-Public Use
  Company Number: RO-SA-2019SA209997

PATIENT
  Age: 77 Year
  Sex: Female

DRUGS (9)
  1. TERTENSIF [Concomitant]
     Active Substance: INDAPAMIDE
     Dosage: UNK
  2. SERMION [NICERGOLINE] [Concomitant]
     Dosage: 30 MG
  3. AERIUS [EBASTINE] [Concomitant]
     Active Substance: EBASTINE
     Dosage: UNK
  4. SIMVACARD [Concomitant]
     Active Substance: SIMVASTATIN
     Dosage: 20 MG
  5. SOLIFENACIN SUCCINATE. [Suspect]
     Active Substance: SOLIFENACIN SUCCINATE
     Indication: DYSURIA
     Dosage: ONCE DAILY (AT NIGHT)
     Route: 048
     Dates: start: 20190721, end: 20190730
  6. TAMSULOSIN HYDROCHLORIDE. [Suspect]
     Active Substance: TAMSULOSIN HYDROCHLORIDE
     Indication: DYSURIA
     Dosage: ONCE DAILY (AT NIGHT)
     Route: 048
     Dates: start: 201810, end: 20190720
  7. BETASERC [Concomitant]
     Active Substance: BETAHISTINE
     Dosage: UNK
  8. ASPENTER [Concomitant]
     Active Substance: ASPIRIN
     Dosage: UNK
  9. TAMSULOSIN HYDROCHLORIDE. [Suspect]
     Active Substance: TAMSULOSIN HYDROCHLORIDE
     Dosage: ONCE DAILY AT LUNCH TIME
     Route: 048
     Dates: start: 20190731

REACTIONS (3)
  - Urinary retention [Recovered/Resolved]
  - Product use issue [Unknown]
  - Urinary tract obstruction [Recovered/Resolved]

NARRATIVE: CASE EVENT DATE: 201810
